FAERS Safety Report 16190799 (Version 1)
Quarter: 2019Q2

REPORT INFORMATION
  Report Type: Spontaneous
  Country: US (occurrence: US)
  Receive Date: 20190311
  Receipt Date: 20190311
  Transmission Date: 20190711
  Serious: Yes (Other)
  Sender: FDA-Public Use
  Company Number: None

PATIENT
  Age: 66 Year
  Sex: Male
  Weight: 76.95 kg

DRUGS (2)
  1. TAMSULOSIN [Suspect]
     Active Substance: TAMSULOSIN
     Indication: POLLAKIURIA
  2. TAMSULOSIN [Suspect]
     Active Substance: TAMSULOSIN
     Indication: HYPERTENSION

REACTIONS (5)
  - Manufacturing materials issue [None]
  - Skin induration [None]
  - Skin haemorrhage [None]
  - Urticaria [None]
  - Reaction to colouring [None]

NARRATIVE: CASE EVENT DATE: 20181201
